FAERS Safety Report 7367497-9 (Version None)
Quarter: 2011Q1

REPORT INFORMATION
  Report Type: 
  Country: None (occurrence: None)
  Receive Date: 20110322
  Receipt Date: 20110321
  Transmission Date: 20110831
  Serious: Yes (Death, Life-Threatening, Hospitalization)
  Sender: FDA-Public Use
  Company Number: FR-ABBOTT-10P-056-0631722-00

PATIENT
  Sex: Female

DRUGS (8)
  1. LIPANTHYL [Suspect]
     Indication: PRODUCT USED FOR UNKNOWN INDICATION
     Route: 048
     Dates: start: 20100210
  2. ZYLORIC [Suspect]
     Indication: PRODUCT USED FOR UNKNOWN INDICATION
     Route: 048
     Dates: start: 20100210, end: 20100302
  3. LASIX [Suspect]
     Indication: HYPERTENSION
     Route: 048
     Dates: start: 20100210, end: 20100302
  4. LANTUS [Concomitant]
     Indication: INSULIN-REQUIRING TYPE 2 DIABETES MELLITUS
     Route: 058
  5. GALANTAMINE HYDROBROMIDE [Concomitant]
     Indication: DEMENTIA ALZHEIMER'S TYPE
     Route: 048
     Dates: start: 20100210
  6. KARDEGIC [Concomitant]
     Indication: PRODUCT USED FOR UNKNOWN INDICATION
     Route: 048
     Dates: start: 20100210
  7. DIAMICRON [Suspect]
     Indication: TYPE 2 DIABETES MELLITUS
     Route: 048
     Dates: start: 20100210
  8. TRIATEC [Concomitant]
     Indication: HYPERTENSION
     Route: 048
     Dates: start: 20100210

REACTIONS (1)
  - TOXIC EPIDERMAL NECROLYSIS [None]
